FAERS Safety Report 13931997 (Version 2)
Quarter: 2017Q3

REPORT INFORMATION
  Report Type: Spontaneous
  Country: DE (occurrence: DE)
  Receive Date: 20170904
  Receipt Date: 20170927
  Transmission Date: 20171127
  Serious: Yes (Death, Hospitalization)
  Sender: FDA-Public Use
  Company Number: DE-STRIDES ARCOLAB LIMITED-2017SP012246

PATIENT

DRUGS (8)
  1. THIORIDAZINE [Suspect]
     Active Substance: THIORIDAZINE
     Indication: SCHIZOPHRENIA
     Dosage: UNKNOWN
     Route: 065
  2. PROMETHAZINE HYDROCHLORIDE. [Suspect]
     Active Substance: PROMETHAZINE HYDROCHLORIDE
     Indication: SCHIZOPHRENIA
     Dosage: UNKNOWN
     Route: 065
  3. CHLORPROTHIXENE [Suspect]
     Active Substance: CHLORPROTHIXENE
     Indication: SCHIZOPHRENIA
     Dosage: UNKNOWN
     Route: 065
  4. CLOZAPINE. [Suspect]
     Active Substance: CLOZAPINE
     Indication: SCHIZOPHRENIA
     Dosage: UNK
     Route: 065
  5. CLOZAPINE. [Suspect]
     Active Substance: CLOZAPINE
     Dosage: BETWEEN 100MG AND 250MG DAILY
     Route: 065
  6. DIAZEPAM. [Suspect]
     Active Substance: DIAZEPAM
     Indication: SCHIZOPHRENIA
     Dosage: UNK
     Route: 065
  7. BENPERIDOL [Suspect]
     Active Substance: BENPERIDOL
     Indication: SCHIZOPHRENIA
     Dosage: UNKNOWN
     Route: 065
  8. CLOZAPINE. [Suspect]
     Active Substance: CLOZAPINE
     Dosage: 100 MG DAILY
     Route: 065

REACTIONS (12)
  - Megacolon [Unknown]
  - Ileus paralytic [Fatal]
  - Intestinal dilatation [Unknown]
  - Abdominal distension [Unknown]
  - Vomiting [Unknown]
  - Cardiac failure [Fatal]
  - Off label use [Unknown]
  - Shock symptom [Fatal]
  - Abdominal pain upper [Unknown]
  - Faecaloma [Unknown]
  - Restlessness [Unknown]
  - Nausea [Unknown]
